FAERS Safety Report 24312721 (Version 1)
Quarter: 2024Q3

REPORT INFORMATION
  Report Type: Report from Study
  Country: IN (occurrence: IN)
  Receive Date: 20240912
  Receipt Date: 20240912
  Transmission Date: 20241016
  Serious: Yes (Hospitalization, Other)
  Sender: CIPLA
  Company Number: IN-CIPLA LTD.-2024IN09726

PATIENT

DRUGS (5)
  1. WARFARIN SODIUM [Suspect]
     Active Substance: WARFARIN SODIUM
     Indication: Product used for unknown indication
     Dosage: 1 DOSE, 1 FREQUENCY (UNITS UNSPECIFIED)
     Route: 048
     Dates: start: 20240827
  2. CORDARONE [Concomitant]
     Active Substance: AMIODARONE HYDROCHLORIDE
     Indication: Product used for unknown indication
     Dosage: UNK
     Route: 065
     Dates: start: 20240827
  3. PAN [Concomitant]
     Indication: Product used for unknown indication
     Dosage: STRENGTH 40 (UNITS UNSPECIFIED),UNK
     Route: 065
     Dates: start: 20240827
  4. THYROX [Concomitant]
     Indication: Product used for unknown indication
     Dosage: UNK
     Route: 065
     Dates: start: 20240827
  5. APIGAT [Concomitant]
     Indication: Product used for unknown indication
     Dosage: STRENGTH: 2.5 (UNITS UNSPECIFIED), UNK
     Route: 065
     Dates: start: 20240827

REACTIONS (1)
  - Paralysis [Not Recovered/Not Resolved]

NARRATIVE: CASE EVENT DATE: 20240830
